FAERS Safety Report 13496376 (Version 3)
Quarter: 2017Q2

REPORT INFORMATION
  Report Type: Report from Study
  Country: US (occurrence: US)
  Receive Date: 20170428
  Receipt Date: 20170520
  Transmission Date: 20170830
  Serious: Yes (Hospitalization, Other)
  Sender: FDA-Public Use
  Company Number: US-AMGEN-USASL2017050961

PATIENT
  Age: 71 Year
  Sex: Female
  Weight: 54.43 kg

DRUGS (18)
  1. XANAX [Concomitant]
     Active Substance: ALPRAZOLAM
     Dosage: 0.5 MG, QD
     Route: 048
  2. BACLOFEN. [Concomitant]
     Active Substance: BACLOFEN
     Dosage: 20 MG, BID
     Route: 048
  3. COREG [Concomitant]
     Active Substance: CARVEDILOL
     Dosage: 3.125 MG, BID
     Route: 048
  4. NITRO-DUR [Concomitant]
     Active Substance: NITROGLYCERIN
     Dosage: 0.4 MG/HR, UNK
     Route: 061
  5. OMEGA 3 FISH OIL [Concomitant]
     Active Substance: FISH OIL\OMEGA-3 FATTY ACIDS
     Dosage: UNK UNK, QD
     Route: 048
  6. VITAMIN D3 [Concomitant]
     Active Substance: CHOLECALCIFEROL
     Dosage: 5000 UNIT, QD
     Route: 048
  7. CYMBALTA [Concomitant]
     Active Substance: DULOXETINE HYDROCHLORIDE
     Dosage: 60 MG, QD
     Route: 048
  8. XARELTO [Concomitant]
     Active Substance: RIVAROXABAN
  9. LASIX [Concomitant]
     Active Substance: FUROSEMIDE
     Dosage: 40 MG, QD
     Route: 048
  10. NIZORAL [Concomitant]
     Active Substance: KETOCONAZOLE
     Dosage: 2 %, BID
     Route: 061
  11. LISINOPRIL. [Concomitant]
     Active Substance: LISINOPRIL
     Dosage: 15 MG, QD
     Route: 048
  12. CLARITIN [Concomitant]
     Active Substance: LORATADINE
     Dosage: 10 MG, QD
     Route: 048
  13. NICODERM CQ [Concomitant]
     Active Substance: NICOTINE
     Dosage: 14 MG, QD
     Route: 061
  14. NITROSTAT [Concomitant]
     Active Substance: NITROGLYCERIN
     Dosage: 0.4 MG, AS NECESSARY
     Route: 060
  15. TRAZODONE [Concomitant]
     Active Substance: TRAZODONE HYDROCHLORIDE
     Dosage: 100 MG, QD
     Route: 048
  16. REPATHA [Suspect]
     Active Substance: EVOLOCUMAB
     Indication: BLOOD CHOLESTEROL INCREASED
     Dosage: 140 MG/ML, Q2WK
     Route: 058
     Dates: start: 20170314
  17. ECOTRIN [Concomitant]
     Active Substance: ASPIRIN
     Dosage: 81 MG, UNK
     Route: 048
  18. NEOMYCIN AND POLYMYXIN B SULFATES AND HYDROCO [Concomitant]
     Dosage: UNK UNK, QID

REACTIONS (18)
  - Night sweats [Recovering/Resolving]
  - Memory impairment [Unknown]
  - Malaise [Unknown]
  - Hallucination [Unknown]
  - Influenza like illness [Unknown]
  - Fatigue [Not Recovered/Not Resolved]
  - Dyspnoea [Not Recovered/Not Resolved]
  - Chills [Recovering/Resolving]
  - Cough [Not Recovered/Not Resolved]
  - Electrocardiogram abnormal [Unknown]
  - Urosepsis [Unknown]
  - Hypokalaemia [Unknown]
  - Sepsis [Unknown]
  - Hypotension [Unknown]
  - Encephalopathy [Recovered/Resolved]
  - Urinary tract infection [Unknown]
  - Oedema peripheral [Unknown]
  - Dizziness [Not Recovered/Not Resolved]

NARRATIVE: CASE EVENT DATE: 2017
